FAERS Safety Report 7956150-6 (Version None)
Quarter: 2011Q4

REPORT INFORMATION
  Report Type: 
  Country: None (occurrence: None)
  Receive Date: 20111205
  Receipt Date: 20111123
  Transmission Date: 20120403
  Serious: Yes (Other)
  Sender: FDA-Public Use
  Company Number: US-ELI_LILLY_AND_COMPANY-US201111008470

PATIENT
  Age: 73 Year
  Sex: Female

DRUGS (2)
  1. HUMALOG [Suspect]
     Dosage: UNK, TID
  2. HUMALOG [Suspect]
     Indication: DIABETES MELLITUS
     Dosage: UNK, TID

REACTIONS (4)
  - MOBILITY DECREASED [None]
  - SURGERY [None]
  - BREAST CANCER [None]
  - JOINT INJURY [None]
